FAERS Safety Report 17259779 (Version 2)
Quarter: 2020Q1

REPORT INFORMATION
  Report Type: Spontaneous
  Country: IT (occurrence: IT)
  Receive Date: 20200110
  Receipt Date: 20200327
  Transmission Date: 20200409
  Serious: Yes (Hospitalization)
  Sender: FDA-Public Use
  Company Number: IT-AUROBINDO-AUR-APL-2020-002005

PATIENT
  Age: 32 Year
  Sex: Female

DRUGS (3)
  1. FELISON [Suspect]
     Active Substance: FLURAZEPAM MONOHYDROCHLORIDE
     Indication: INTENTIONAL OVERDOSE
     Dosage: 5 DOSAGE FORM,TOTAL
     Route: 048
     Dates: start: 20200101, end: 20200101
  2. ATENOLOL FILM COATED TABLETS [Suspect]
     Active Substance: ATENOLOL
     Indication: INTENTIONAL OVERDOSE
     Dosage: 20 DOSAGE FORM, TOTAL
     Route: 048
     Dates: start: 20200101, end: 20200101
  3. TAVOR (LORAZEPAM) [Suspect]
     Active Substance: LORAZEPAM
     Indication: INTENTIONAL OVERDOSE
     Dosage: 8 DOSAGE FORM,TOTAL
     Route: 048
     Dates: start: 20200101, end: 20200101

REACTIONS (3)
  - Overdose [Not Recovered/Not Resolved]
  - Sopor [Not Recovered/Not Resolved]
  - Intentional overdose [Not Recovered/Not Resolved]

NARRATIVE: CASE EVENT DATE: 20200101
